APPROVED DRUG PRODUCT: LETAIRIS
Active Ingredient: AMBRISENTAN
Strength: 10MG
Dosage Form/Route: TABLET;ORAL
Application: N022081 | Product #002 | TE Code: AB
Applicant: GILEAD SCIENCES INC
Approved: Jun 15, 2007 | RLD: Yes | RS: Yes | Type: RX

PATENTS:
Patent 9474752 | Expires: Dec 11, 2027
Patent 9549926 | Expires: Oct 14, 2031
Patent 8377933 | Expires: Dec 11, 2027